FAERS Safety Report 6163466-5 (Version None)
Quarter: 2009Q2

REPORT INFORMATION
  Report Type: 
  Country: None (occurrence: None)
  Receive Date: 20090420
  Receipt Date: 20090420
  Transmission Date: 20091009
  Serious: Yes (Hospitalization)
  Sender: FDA-Public Use
  Company Number: None

PATIENT
  Sex: Female
  Weight: 13.9 kg

DRUGS (4)
  1. CYCLOPHOSPHAMIDE [Suspect]
     Dosage: 3660 MG
  2. G-CSF (FILGRASTIM, AMGEN) [Suspect]
     Dosage: 5325 MCG
  3. MESNA [Suspect]
     Dosage: 2379 MG
  4. THIOTEPA [Suspect]
     Dosage: 549 MG

REACTIONS (4)
  - BONE MARROW FAILURE [None]
  - METASTATIC NEOPLASM [None]
  - NEUROBLASTOMA [None]
  - PANCYTOPENIA [None]
